FAERS Safety Report 7611758-2 (Version None)
Quarter: 2011Q3

REPORT INFORMATION
  Report Type: 
  Country: None (occurrence: None)
  Receive Date: 20110715
  Receipt Date: 20110704
  Transmission Date: 20111222
  Serious: Yes (Other)
  Sender: FDA-Public Use
  Company Number: GR-SANOFI-AVENTIS-2011SA043159

PATIENT

DRUGS (3)
  1. OXALIPLATIN [Suspect]
     Dosage: IV OXALIPLATIN INFUSION IN 2 HR AT A DOSE OF 130 MG/M2 ON DAY 1
     Route: 042
  2. CAPECITABINE [Suspect]
     Dosage: IV CAPECITABINE INFUSION AT A DOSE OF 1000 MG/M2 BID ON DAY 1-14
     Route: 042
  3. BEVACIZUMAB [Suspect]
     Dosage: IV BEVACIZUMAB INFUSION OF 30 MIN AT A DOSE OF 7.5 MG/M2 ON DAY 1 CYCLE OF 21 DAYS
     Route: 042

REACTIONS (6)
  - NAUSEA [None]
  - ANAEMIA [None]
  - PALMAR-PLANTAR ERYTHRODYSAESTHESIA SYNDROME [None]
  - NEUTROPENIA [None]
  - DIARRHOEA [None]
  - HYPERTENSION [None]
